FAERS Safety Report 19821435 (Version 1)
Quarter: 2021Q3

REPORT INFORMATION
  Report Type: Spontaneous
  Country: IT (occurrence: IT)
  Receive Date: 20210913
  Receipt Date: 20210913
  Transmission Date: 20211014
  Serious: Yes (Other)
  Sender: FDA-Public Use
  Company Number: IT-ACCORD-238288

PATIENT
  Age: 70 Year
  Sex: Female
  Weight: 53 kg

DRUGS (7)
  1. OMEPRAZOLE. [Concomitant]
     Active Substance: OMEPRAZOLE
     Route: 042
     Dates: start: 20210712, end: 20210712
  2. ONDANSETRON [Concomitant]
     Active Substance: ONDANSETRON
     Route: 042
     Dates: start: 20210712, end: 20210712
  3. URBASON SOLUBLE [Concomitant]
     Active Substance: METHYLPREDNISOLONE SODIUM SUCCINATE
     Route: 042
     Dates: start: 20210712, end: 20210712
  4. PACLITAXEL ACCORD [Suspect]
     Active Substance: PACLITAXEL
     Indication: ENDOMETRIAL CANCER
     Route: 042
     Dates: start: 20210712, end: 20210712
  5. SOLDESAM [Concomitant]
     Active Substance: DEXAMETHASONE
     Route: 042
     Dates: start: 20210712, end: 20210712
  6. TRIMETON [Concomitant]
     Active Substance: CHLORPHENIRAMINE MALEATE
     Route: 042
     Dates: start: 20210712, end: 20210712
  7. CARBOPLATIN AHCL [Concomitant]
     Active Substance: CARBOPLATIN
     Indication: ENDOMETRIAL CANCER
     Route: 042
     Dates: start: 20210712, end: 20210712

REACTIONS (6)
  - Infusion site pain [Recovering/Resolving]
  - Infusion site oedema [Recovering/Resolving]
  - Infusion site erythema [Recovering/Resolving]
  - Off label use [Unknown]
  - Device dislocation [Recovering/Resolving]
  - Administration site extravasation [Recovering/Resolving]

NARRATIVE: CASE EVENT DATE: 20210712
